FAERS Safety Report 4379755-0 (Version None)
Quarter: 2004Q2

REPORT INFORMATION
  Report Type: 
  Country: None (occurrence: None)
  Receive Date: 20040617
  Receipt Date: 20040608
  Transmission Date: 20050107
  Serious: Yes (Death, Life-Threatening, Hospitalization)
  Sender: FDA-Public Use
  Company Number: ES-GLAXOSMITHKLINE-B0335704A

PATIENT
  Age: 85 Year
  Sex: Male

DRUGS (6)
  1. AMOXICILLIN SODIUM + POTASSIUM CLAVULANATE [Suspect]
     Indication: RESPIRATORY TRACT INFECTION
     Route: 042
     Dates: start: 20040331, end: 20040402
  2. PANTOPRAZOLE [Suspect]
     Indication: PROPHYLAXIS
     Dosage: 20MG PER DAY
     Route: 048
     Dates: start: 20040331, end: 20040405
  3. IPRATROPIUM BROMIDE [Suspect]
     Indication: COR PULMONALE
     Dosage: 1G PER DAY
     Route: 055
     Dates: start: 20040331, end: 20040405
  4. BUDESONIDE [Suspect]
     Indication: COR PULMONALE
     Dosage: 20MG PER DAY
     Route: 055
     Dates: start: 20040331, end: 20040405
  5. ENALAPRIL MALEATE [Suspect]
     Indication: HYPERTENSION
     Dosage: 5MG PER DAY
     Route: 048
     Dates: end: 20040402
  6. POTASSIUM SALT [Suspect]
     Indication: COR PULMONALE
     Dosage: 10ML PER DAY
     Route: 048
     Dates: start: 20040331, end: 20040405

REACTIONS (3)
  - DEATH [None]
  - ERYTHEMA MULTIFORME [None]
  - TOXIC EPIDERMAL NECROLYSIS [None]
